FAERS Safety Report 7736191-4 (Version None)
Quarter: 2011Q3

REPORT INFORMATION
  Report Type: 
  Country: None (occurrence: None)
  Receive Date: 20110908
  Receipt Date: 20110830
  Transmission Date: 20111222
  Serious: Yes (Other)
  Sender: FDA-Public Use
  Company Number: CH-US-EMD SERONO, INC.-7063783

PATIENT
  Sex: Female
  Weight: 60 kg

DRUGS (3)
  1. LEVOTHYROXINE SODIUM [Concomitant]
     Indication: HYPOTHYROIDISM
     Route: 048
  2. VITAMINES [Concomitant]
     Route: 048
  3. REBIF [Suspect]
     Indication: MULTIPLE SCLEROSIS
     Route: 058
     Dates: start: 19990901

REACTIONS (5)
  - RASH PRURITIC [None]
  - INFLUENZA LIKE ILLNESS [None]
  - SKIN IRRITATION [None]
  - AUTOIMMUNE THYROIDITIS [None]
  - MUSCLE SPASMS [None]
